FAERS Safety Report 11910466 (Version 1)
Quarter: 2016Q1

REPORT INFORMATION
  Report Type: Spontaneous
  Country: US (occurrence: None)
  Receive Date: 20160111
  Receipt Date: 20160111
  Transmission Date: 20160526
  Serious: Yes (Hospitalization)
  Sender: FDA-Public Use
  Company Number: None

PATIENT
  Age: 71 Year
  Sex: Female
  Weight: 69 kg

DRUGS (2)
  1. CARBOPLATIN. [Suspect]
     Active Substance: CARBOPLATIN
     Dates: end: 20151201
  2. TAXOL [Suspect]
     Active Substance: PACLITAXEL
     Dates: end: 20151217

REACTIONS (4)
  - Pain [None]
  - Hypoaesthesia [None]
  - Chest pain [None]
  - Eating disorder [None]

NARRATIVE: CASE EVENT DATE: 20151223
